FAERS Safety Report 9792041 (Version 1)
Quarter: 2013Q4

REPORT INFORMATION
  Report Type: Spontaneous
  Country: US (occurrence: None)
  Receive Date: 20131230
  Receipt Date: 20131230
  Transmission Date: 20140711
  Serious: No
  Sender: FDA-Public Use
  Company Number: 20130745

PATIENT
  Sex: Female

DRUGS (1)
  1. BETAMETHASONE SODIUM PHOSPHATE AND BETAMETHASONE ACETATE INJ SUSP. [Suspect]
     Indication: PLANTAR FASCIITIS

REACTIONS (3)
  - Nerve injury [None]
  - Pain [None]
  - Neuralgia [None]
